FAERS Safety Report 13388586 (Version 1)
Quarter: 2017Q1

REPORT INFORMATION
  Report Type: Spontaneous
  Country: IT (occurrence: IT)
  Receive Date: 20170330
  Receipt Date: 20170330
  Transmission Date: 20170429
  Serious: Yes (Hospitalization)
  Sender: FDA-Public Use
  Company Number: IT-INGENUS PHARMACEUTICALS NJ, LLC-ING201703-000141

PATIENT
  Age: 15 Year
  Sex: Male

DRUGS (3)
  1. PROBENECID AND COLCHICINE [Suspect]
     Active Substance: COLCHICINE\PROBENECID
  2. PROBENECID AND COLCHICINE [Suspect]
     Active Substance: COLCHICINE\PROBENECID
     Indication: FAMILIAL MEDITERRANEAN FEVER
  3. PROBENECID AND COLCHICINE [Suspect]
     Active Substance: COLCHICINE\PROBENECID

REACTIONS (4)
  - Myopathy [Recovered/Resolved]
  - Neuromyopathy [Recovered/Resolved]
  - Neuromuscular toxicity [Recovered/Resolved]
  - Product use issue [Unknown]
